FAERS Safety Report 9115922 (Version 3)
Quarter: 2013Q2

REPORT INFORMATION
  Report Type: Spontaneous
  Country: AU (occurrence: AU)
  Receive Date: 20130225
  Receipt Date: 20130412
  Transmission Date: 20140414
  Serious: Yes (Other)
  Sender: FDA-Public Use
  Company Number: AU-ASTRAZENECA-2013SE11213

PATIENT
  Sex: Male

DRUGS (3)
  1. CRESTOR [Suspect]
     Route: 048
  2. CRESTOR [Suspect]
     Route: 048
  3. ASPIRIN [Suspect]
     Route: 048

REACTIONS (4)
  - Metastatic neoplasm [Unknown]
  - Gastrointestinal haemorrhage [Recovering/Resolving]
  - Blister [Recovering/Resolving]
  - Abdominal pain upper [Recovering/Resolving]
